FAERS Safety Report 8470580-8 (Version None)
Quarter: 2012Q2

REPORT INFORMATION
  Report Type: 
  Country: None (occurrence: None)
  Receive Date: 20120627
  Receipt Date: 20120622
  Transmission Date: 20120825
  Serious: Yes (Hospitalization, Other)
  Sender: FDA-Public Use
  Company Number: PHHY2012BR054415

PATIENT
  Sex: Male

DRUGS (3)
  1. TRILEPTAL [Concomitant]
     Indication: CONVULSION
     Dosage: 1 TABLET IN THE MORNING AND 1 TABLET AT NIGHT
     Route: 048
  2. RITALIN LA [Suspect]
     Indication: PSYCHOMOTOR HYPERACTIVITY
  3. RITALIN LA [Suspect]
     Indication: ANXIETY
     Dosage: UNK UKN, UNK
     Route: 048

REACTIONS (4)
  - COMA [None]
  - INSOMNIA [None]
  - GASTROINTESTINAL INJURY [None]
  - ACCIDENT AT WORK [None]
